FAERS Safety Report 5899790-0 (Version None)
Quarter: 2008Q3

REPORT INFORMATION
  Report Type: 
  Country: None (occurrence: None)
  Receive Date: 20080924
  Receipt Date: 20080917
  Transmission Date: 20090109
  Serious: Yes (Death, Hospitalization, Other)
  Sender: FDA-Public Use
  Company Number: 2008SP019158

PATIENT
  Sex: Male

DRUGS (12)
  1. PEG-INTRON [Suspect]
     Indication: HEPATITIS C
     Dates: start: 20020101
  2. RIBAVIRIN [Suspect]
     Indication: HEPATITIS C
     Dosage: ;PO, ;PO
     Route: 048
     Dates: start: 20070913, end: 20080507
  3. RIBAVIRIN [Suspect]
     Indication: HEPATITIS C
     Dosage: ;PO, ;PO
     Route: 048
     Dates: start: 20020101
  4. PEGASYS [Suspect]
     Indication: HEPATITIS C
     Dates: start: 20070913, end: 20080507
  5. TRIAMCINOLONE [Concomitant]
  6. POTASSIUM CHLORIDE [Concomitant]
  7. ATENOLOL [Concomitant]
  8. FUROSEMIDE [Concomitant]
  9. CLARITHROMYCIN [Concomitant]
  10. TRIMETHROPRIM-SULFAMETOXAZOLE [Concomitant]
  11. DIPHENHYDRAMINE HCL [Concomitant]
  12. RANITIDINE [Concomitant]

REACTIONS (6)
  - AGITATION [None]
  - ANXIETY [None]
  - BONE NEOPLASM MALIGNANT [None]
  - LUNG ADENOCARCINOMA [None]
  - MENTAL STATUS CHANGES [None]
  - NO THERAPEUTIC RESPONSE [None]
